FAERS Safety Report 9594991 (Version 1)
Quarter: 2013Q4

REPORT INFORMATION
  Report Type: Spontaneous
  Country: FR (occurrence: FR)
  Receive Date: 20131004
  Receipt Date: 20131004
  Transmission Date: 20140711
  Serious: Yes (Life-Threatening)
  Sender: FDA-Public Use
  Company Number: FR-JNJFOC-20130917350

PATIENT
  Age: 56 Year
  Sex: Male

DRUGS (8)
  1. PREZISTA [Suspect]
     Indication: PRODUCT USED FOR UNKNOWN INDICATION
     Route: 065
  2. TRUVADA [Suspect]
     Indication: PRODUCT USED FOR UNKNOWN INDICATION
     Route: 065
     Dates: start: 20130311
  3. NORVIR [Suspect]
     Indication: PRODUCT USED FOR UNKNOWN INDICATION
     Route: 065
  4. VALACICLOVIR [Suspect]
     Indication: PRODUCT USED FOR UNKNOWN INDICATION
     Route: 065
  5. TRIMEBUTINE [Suspect]
     Indication: PRODUCT USED FOR UNKNOWN INDICATION
     Route: 065
     Dates: start: 20130903
  6. BROMAZEPAM [Suspect]
     Indication: PRODUCT USED FOR UNKNOWN INDICATION
     Route: 065
     Dates: start: 20130903
  7. ZELITREX [Concomitant]
     Route: 065
  8. PENTACARINAT [Concomitant]
     Route: 065

REACTIONS (5)
  - Agranulocytosis [Not Recovered/Not Resolved]
  - Toxicity to various agents [Unknown]
  - Weight increased [Unknown]
  - Diarrhoea [Unknown]
  - Haemorrhoids [Unknown]
